FAERS Safety Report 16794825 (Version 2)
Quarter: 2019Q3

REPORT INFORMATION
  Report Type: Spontaneous
  Country: US (occurrence: US)
  Receive Date: 20190911
  Receipt Date: 20190927
  Transmission Date: 20191005
  Serious: No
  Sender: FDA-Public Use
  Company Number: US-PFIZER INC-2019387167

PATIENT
  Age: 83 Year
  Sex: Female
  Weight: 48.53 kg

DRUGS (1)
  1. TIKOSYN [Suspect]
     Active Substance: DOFETILIDE
     Indication: ATRIAL FIBRILLATION
     Dosage: UNK
     Dates: start: 20190228

REACTIONS (4)
  - Insomnia [Unknown]
  - Therapeutic product effect delayed [Unknown]
  - Urinary tract infection [Not Recovered/Not Resolved]
  - Contraindicated product prescribed [Unknown]

NARRATIVE: CASE EVENT DATE: 20190901
